FAERS Safety Report 9760710 (Version 1)
Quarter: 2013Q4

REPORT INFORMATION
  Report Type: Spontaneous
  Country: US (occurrence: US)
  Receive Date: 20131216
  Receipt Date: 20131216
  Transmission Date: 20140711
  Serious: No
  Sender: FDA-Public Use
  Company Number: US-BIOGENIDEC-2013BI101410

PATIENT
  Sex: Male

DRUGS (8)
  1. TECFIDERA [Suspect]
     Indication: PRODUCT USED FOR UNKNOWN INDICATION
     Route: 048
  2. TECFIDERA [Suspect]
     Indication: PRODUCT USED FOR UNKNOWN INDICATION
     Route: 048
     Dates: start: 20130920
  3. MODAFINIL [Concomitant]
  4. HYOSCYAMINE [Concomitant]
  5. SERTRALINE [Concomitant]
  6. VALPROIC ACD [Concomitant]
  7. SUMATRIPTAN [Concomitant]
  8. VITAMIN B PLUS + (NOS) [Concomitant]

REACTIONS (1)
  - Loss of control of legs [Unknown]
